FAERS Safety Report 18356412 (Version 2)
Quarter: 2020Q4

REPORT INFORMATION
  Report Type: Spontaneous
  Country: BR (occurrence: BR)
  Receive Date: 20201007
  Receipt Date: 20201022
  Transmission Date: 20210114
  Serious: Yes (Other)
  Sender: FDA-Public Use
  Company Number: NVSC2020BR268162

PATIENT
  Age: 47 Year
  Sex: Male

DRUGS (4)
  1. EVEROLIMUS. [Suspect]
     Active Substance: EVEROLIMUS
     Indication: NEUROENDOCRINE TUMOUR
     Dosage: 10 MG
     Route: 048
  2. TEMOZOLOMIDE. [Suspect]
     Active Substance: TEMOZOLOMIDE
     Indication: NEUROENDOCRINE TUMOUR
     Dosage: UNK
     Route: 065
  3. CAPECITABINE. [Suspect]
     Active Substance: CAPECITABINE
     Indication: NEUROENDOCRINE TUMOUR
     Dosage: UNK
     Route: 065
     Dates: start: 202008
  4. SUNITINIB [Suspect]
     Active Substance: SUNITINIB
     Indication: NEUROENDOCRINE TUMOUR
     Dosage: 37.5 MG
     Route: 048
     Dates: start: 202001

REACTIONS (3)
  - Liver injury [Unknown]
  - Hepatic mass [Unknown]
  - Pancreatic cyst [Unknown]
